FAERS Safety Report 9946064 (Version 1)
Quarter: 2014Q1

REPORT INFORMATION
  Report Type: Spontaneous
  Country: US (occurrence: US)
  Receive Date: 20140303
  Receipt Date: 20140303
  Transmission Date: 20141002
  Serious: No
  Sender: FDA-Public Use
  Company Number: US-AMGEN-USASP2013076472

PATIENT
  Age: 60 Year
  Sex: Female

DRUGS (6)
  1. ENBREL [Suspect]
     Indication: PRODUCT USED FOR UNKNOWN INDICATION
     Dosage: 25 MG, 2 TIMES/WK
     Route: 058
  2. MULTIVITAMIN                       /07504101/ [Concomitant]
     Dosage: UNK
  3. CALCIUM [Concomitant]
     Dosage: 500 UNK, UNK
  4. VITAMIN D2 [Concomitant]
     Dosage: 400 UNIT, UNK
  5. VITAMIN E                          /00110501/ [Concomitant]
     Dosage: 200 UNIT, UNK
  6. COQ 10 [Concomitant]
     Dosage: 100 MG, UNK

REACTIONS (2)
  - Sinusitis [Unknown]
  - Tonsillitis [Unknown]
